FAERS Safety Report 8141097-5 (Version None)
Quarter: 2012Q1

REPORT INFORMATION
  Report Type: 
  Country: None (occurrence: None)
  Receive Date: 20120216
  Receipt Date: 20120209
  Transmission Date: 20120608
  Serious: Yes (Hospitalization)
  Sender: FDA-Public Use
  Company Number: US-BAYER-2012-013655

PATIENT
  Age: 26 Year
  Sex: Female
  Weight: 110 kg

DRUGS (1)
  1. ASPIRIN [Suspect]
     Dosage: MAYBE INGESTED 80 TABLETS
     Route: 048
     Dates: start: 20120209, end: 20120209

REACTIONS (1)
  - COMA [None]
